FAERS Safety Report 18669172 (Version 2)
Quarter: 2021Q1

REPORT INFORMATION
  Report Type: Spontaneous
  Country: US (occurrence: US)
  Receive Date: 20201228
  Receipt Date: 20210203
  Transmission Date: 20210419
  Serious: No
  Sender: FDA-Public Use
  Company Number: US-009507513-2012USA010209

PATIENT
  Age: 40 Year
  Sex: Male

DRUGS (1)
  1. ASMANEX HFA [Suspect]
     Active Substance: MOMETASONE FUROATE
     Indication: ASTHMA
     Dosage: 4 PUFF A DAY
     Dates: start: 20201124

REACTIONS (4)
  - Poor quality device used [Unknown]
  - Incorrect dose administered [Unknown]
  - Insomnia [Unknown]
  - Device malfunction [Unknown]

NARRATIVE: CASE EVENT DATE: 20201124
